FAERS Safety Report 16111238 (Version 2)
Quarter: 2025Q1

REPORT INFORMATION
  Report Type: Spontaneous
  Country: ES (occurrence: ES)
  Receive Date: 20190325
  Receipt Date: 20250221
  Transmission Date: 20250408
  Serious: Yes (Other)
  Sender: AUROBINDO
  Company Number: ES-AUROBINDO-AUR-APL-2019-014956

PATIENT
  Age: 52 Year
  Sex: Female

DRUGS (3)
  1. ESOMEPRAZOLE [Interacting]
     Active Substance: ESOMEPRAZOLE
     Indication: Product used for unknown indication
     Dosage: 40 MILLIGRAM, TWO TIMES A DAY
     Route: 048
     Dates: start: 20190219
  2. PYLERA [Interacting]
     Active Substance: BISMUTH SUBCITRATE POTASSIUM\METRONIDAZOLE\TETRACYCLINE HYDROCHLORIDE
     Indication: Helicobacter infection
     Dosage: 3 DOSAGE FORM, FOUR TIMES/DAY
     Route: 048
     Dates: start: 20190219
  3. CYANOCOBALAMIN [Concomitant]
     Active Substance: CYANOCOBALAMIN
     Indication: Product used for unknown indication
     Route: 030

REACTIONS (5)
  - Headache [Unknown]
  - Choluria [Unknown]
  - Abdominal pain upper [Unknown]
  - Faeces pale [Unknown]
  - Drug interaction [Unknown]

NARRATIVE: CASE EVENT DATE: 20190222
